FAERS Safety Report 5589546-0 (Version None)
Quarter: 2008Q1

REPORT INFORMATION
  Report Type: 
  Country: None (occurrence: None)
  Receive Date: 20080114
  Receipt Date: 20080108
  Transmission Date: 20080703
  Serious: Yes (Other)
  Sender: FDA-Public Use
  Company Number: PHBS2008US00602

PATIENT
  Age: 64 Year
  Sex: Male

DRUGS (2)
  1. LIORESAL [Suspect]
     Indication: MUSCLE SPASTICITY
     Route: 037
  2. SODIUM CHLORIDE 0.9% [Concomitant]
     Route: 065

REACTIONS (2)
  - DEPRESSION [None]
  - DRUG INEFFECTIVE [None]
